FAERS Safety Report 16185612 (Version 1)
Quarter: 2019Q2

REPORT INFORMATION
  Report Type: Report from Study
  Country: FR (occurrence: FR)
  Receive Date: 20190411
  Receipt Date: 20190411
  Transmission Date: 20190711
  Serious: Yes (Other)
  Sender: FDA-Public Use
  Company Number: PHHO2019FR003724

PATIENT
  Age: 31 Year
  Sex: Female

DRUGS (1)
  1. NELARABINE [Suspect]
     Active Substance: NELARABINE
     Indication: ACUTE LYMPHOCYTIC LEUKAEMIA
     Dosage: 2500 MG, EVERY 1 DAY
     Route: 065
     Dates: start: 20181001, end: 20181005

REACTIONS (3)
  - Vertigo [Recovered/Resolved]
  - Asthenia [Recovered/Resolved]
  - Attention deficit/hyperactivity disorder [Recovered/Resolved]

NARRATIVE: CASE EVENT DATE: 20181015
